FAERS Safety Report 5497195-8 (Version None)
Quarter: 2007Q4

REPORT INFORMATION
  Report Type: 
  Country: None (occurrence: None)
  Receive Date: 20071025
  Receipt Date: 20060907
  Transmission Date: 20080405
  Serious: No
  Sender: FDA-Public Use
  Company Number: A0619242A

PATIENT
  Age: 79 Year
  Sex: Female

DRUGS (7)
  1. ADVAIR DISKUS 100/50 [Suspect]
     Indication: CHRONIC OBSTRUCTIVE PULMONARY DISEASE
     Dosage: 1PUFF TWICE PER DAY
     Route: 055
  2. POTASSIUM CHLORIDE [Concomitant]
  3. VERAPAMIL [Concomitant]
  4. LASIX [Concomitant]
  5. THEOPHYLLINE [Concomitant]
  6. OXYGEN THERAPY [Concomitant]
  7. SPIRIVA [Concomitant]

REACTIONS (1)
  - EPISTAXIS [None]
